FAERS Safety Report 19755046 (Version 1)
Quarter: 2021Q3

REPORT INFORMATION
  Report Type: Report from Study
  Country: US (occurrence: US)
  Receive Date: 20210827
  Receipt Date: 20210827
  Transmission Date: 20211014
  Serious: No
  Sender: FDA-Public Use
  Company Number: US-BIOVITRUM-2021US7739

PATIENT
  Sex: Male

DRUGS (5)
  1. ASPIRIN ADULT L [Concomitant]
  2. GOODSENSE [Concomitant]
  3. LASIX [Concomitant]
     Active Substance: FUROSEMIDE
  4. PLAVIX [Concomitant]
     Active Substance: CLOPIDOGREL BISULFATE
  5. SYNAGIS [Suspect]
     Active Substance: PALIVIZUMAB
     Indication: PREMATURE BABY
     Dosage: 100 MG/ML
     Route: 030

REACTIONS (2)
  - Vomiting [Unknown]
  - Pyrexia [Unknown]
